FAERS Safety Report 19122695 (Version 1)
Quarter: 2021Q2

REPORT INFORMATION
  Report Type: Spontaneous
  Country: US (occurrence: US)
  Receive Date: 20210412
  Receipt Date: 20210412
  Transmission Date: 20210717
  Serious: Yes (Hospitalization, Other)
  Sender: FDA-Public Use
  Company Number: US-DRREDDYS-USA/USA/21/0133996

PATIENT
  Age: 65 Year
  Sex: Male

DRUGS (4)
  1. TACROLIMUS. [Suspect]
     Active Substance: TACROLIMUS
     Indication: IMMUNOSUPPRESSANT DRUG THERAPY
     Dosage: ALTERNATING DOSE OF 0.5 MG AND 0.25 MG TWICE A DAY FROM 2 YEARS
  2. PREDNISONE. [Concomitant]
     Active Substance: PREDNISONE
     Indication: IMMUNOSUPPRESSANT DRUG THERAPY
  3. TACROLIMUS. [Suspect]
     Active Substance: TACROLIMUS
     Dosage: ALTERNATING DOSE OF 0.5 MG AND 0.25 MG TWICE A DAY FROM 2 YEARS
  4. CELLCEPT [Concomitant]
     Active Substance: MYCOPHENOLATE MOFETIL\MYCOPHENOLATE MOFETIL HYDROCHLORIDE
     Indication: IMMUNOSUPPRESSANT DRUG THERAPY

REACTIONS (6)
  - Toxicity to various agents [Unknown]
  - Acute kidney injury [Recovered/Resolved]
  - Pupillary reflex impaired [Unknown]
  - Varicella zoster virus infection [Recovered/Resolved]
  - Visual field defect [Unknown]
  - Optic atrophy [Unknown]
